FAERS Safety Report 9322101 (Version 1)
Quarter: 2013Q2

REPORT INFORMATION
  Report Type: Spontaneous
  Country: US (occurrence: None)
  Receive Date: 20130530
  Receipt Date: 20130530
  Transmission Date: 20140414
  Serious: Yes (Hospitalization)
  Sender: FDA-Public Use
  Company Number: None

PATIENT
  Age: 63 Year
  Sex: Male
  Weight: 101.4 kg

DRUGS (1)
  1. MINOCYCLINE [Suspect]
     Indication: OSTEOMYELITIS
     Route: 048
     Dates: start: 20130524, end: 20130516

REACTIONS (1)
  - Pericardial haemorrhage [None]
